FAERS Safety Report 13466355 (Version 1)
Quarter: 2017Q2

REPORT INFORMATION
  Report Type: Spontaneous
  Country: US (occurrence: US)
  Receive Date: 20170421
  Receipt Date: 20170421
  Transmission Date: 20170830
  Serious: Yes (Other)
  Sender: FDA-Public Use
  Company Number: US-APOTEX-2017AP010624

PATIENT
  Age: 13 Year
  Sex: Male

DRUGS (1)
  1. CYCLOSPORINE ORAL SOLUTION USP [Suspect]
     Active Substance: CYCLOSPORINE
     Indication: IMMUNOSUPPRESSION
     Route: 065

REACTIONS (1)
  - Renal failure [Recovering/Resolving]
